FAERS Safety Report 25483043 (Version 2)
Quarter: 2025Q3

REPORT INFORMATION
  Report Type: Report from Study
  Country: US (occurrence: US)
  Receive Date: 20250626
  Receipt Date: 20250703
  Transmission Date: 20251021
  Serious: Yes (Hospitalization, Other)
  Sender: TAKEDA
  Company Number: US-TAKEDA-2025TUS057868

PATIENT
  Sex: Male

DRUGS (12)
  1. PONATINIB [Suspect]
     Active Substance: PONATINIB
     Indication: Chronic myeloid leukaemia
     Dosage: 45 MILLIGRAM, QD
  2. PONATINIB [Suspect]
     Active Substance: PONATINIB
     Dosage: 45 MILLIGRAM, QD
  3. BENZONATATE [Concomitant]
     Active Substance: BENZONATATE
  4. NOVOLOG [Concomitant]
     Active Substance: INSULIN ASPART
  5. LEVAQUIN [Concomitant]
     Active Substance: LEVOFLOXACIN
  6. PRILOSEC [Concomitant]
     Active Substance: OMEPRAZOLE MAGNESIUM
  7. ZOFRAN [Concomitant]
     Active Substance: ONDANSETRON HYDROCHLORIDE
  8. ZOLOFT [Concomitant]
     Active Substance: SERTRALINE HYDROCHLORIDE
  9. CRESEMBA [Concomitant]
     Active Substance: ISAVUCONAZONIUM SULFATE
  10. AMBISOME [Concomitant]
     Active Substance: AMPHOTERICIN B
  11. ZOVIRAX [Concomitant]
     Active Substance: ACYCLOVIR
  12. MEPRON [Concomitant]
     Active Substance: ATOVAQUONE

REACTIONS (3)
  - Chronic myeloid leukaemia transformation [Unknown]
  - Off label use [Unknown]
  - Headache [Unknown]
